FAERS Safety Report 6291825-9 (Version None)
Quarter: 2009Q3

REPORT INFORMATION
  Report Type: 
  Country: None (occurrence: None)
  Receive Date: 20090729
  Receipt Date: 20090716
  Transmission Date: 20100115
  Serious: No
  Sender: FDA-Public Use
  Company Number: DSU-2009-01463

PATIENT
  Age: 46 Year
  Sex: Female
  Weight: 111.5849 kg

DRUGS (8)
  1. WELCHOL [Suspect]
     Indication: HYPERLIPIDAEMIA
     Dosage: 2500 MG (1250 MG, BID), PER ORAL
     Route: 048
     Dates: start: 20090714
  2. WELCHOL [Suspect]
     Indication: WEIGHT CONTROL
     Dosage: 2500 MG (1250 MG, BID), PER ORAL
     Route: 048
     Dates: start: 20090714
  3. ALESSE 28 (ETHINYLESTRADIOL, LEVONORGESTREL) [Concomitant]
  4. MELOXICAM [Concomitant]
  5. FLEXERIL [Concomitant]
  6. ZOLOFT [Concomitant]
  7. DITROPAN (OXYBUTYNIN) (OXYBUTYNIN) [Concomitant]
  8. PHENTERMINE (PHENTERMINE) (37.5 MILLIGRAM) (PHENTERMINE) [Concomitant]

REACTIONS (4)
  - DYSPEPSIA [None]
  - DYSPHAGIA [None]
  - INCORRECT ROUTE OF DRUG ADMINISTRATION [None]
  - OFF LABEL USE [None]
